FAERS Safety Report 6571800-7 (Version None)
Quarter: 2010Q1

REPORT INFORMATION
  Report Type: 
  Country: None (occurrence: None)
  Receive Date: 20100205
  Receipt Date: 20100119
  Transmission Date: 20100710
  Serious: No
  Sender: FDA-Public Use
  Company Number: US-BAYER-200941610NA

PATIENT
  Age: 28 Year
  Sex: Female
  Weight: 70 kg

DRUGS (2)
  1. MIRENA [Suspect]
     Indication: CONTRACEPTION
     Route: 015
     Dates: end: 20081201
  2. MIRENA [Suspect]
     Route: 015
     Dates: start: 20090507, end: 20090510

REACTIONS (3)
  - DYSURIA [None]
  - PELVIC PAIN [None]
  - URINARY TRACT INFECTION [None]
